FAERS Safety Report 15308236 (Version 2)
Quarter: 2018Q4

REPORT INFORMATION
  Report Type: Spontaneous
  Country: FR (occurrence: FR)
  Receive Date: 20180822
  Receipt Date: 20181018
  Transmission Date: 20190204
  Serious: Yes (Death, Congenital Anomaly)
  Sender: FDA-Public Use
  Company Number: FR-TEVA-2018-FR-945861

PATIENT

DRUGS (2)
  1. AZITHROMYCINE ANHYDRE [Suspect]
     Active Substance: AZITHROMYCIN ANHYDROUS
     Indication: PROPHYLAXIS AGAINST HIV INFECTION
     Route: 064
     Dates: start: 20180315
  2. EVIPLERA 200 MG/25 MG/245 MG, COMPRIM? PELLICUL? [Suspect]
     Active Substance: EMTRICITABINE\RILPIVIRINE\TENOFOVIR DISOPROXIL FUMARATE
     Indication: PROPHYLAXIS AGAINST HIV INFECTION
     Dosage: 1 DOSAGE FORMS DAILY;
     Route: 064
     Dates: start: 20180313, end: 20180415

REACTIONS (4)
  - Limb deformity [Fatal]
  - Foetal malformation [Fatal]
  - Foetal exposure during pregnancy [Fatal]
  - Abortion induced [Fatal]

NARRATIVE: CASE EVENT DATE: 20180620
